FAERS Safety Report 7558953-9 (Version None)
Quarter: 2011Q2

REPORT INFORMATION
  Report Type: 
  Country: None (occurrence: None)
  Receive Date: 20110621
  Receipt Date: 20110613
  Transmission Date: 20111010
  Serious: Yes (Death, Life-Threatening, Hospitalization, Other)
  Sender: FDA-Public Use
  Company Number: US-ASTELLAS-2011US002087

PATIENT
  Sex: Male

DRUGS (13)
  1. XANAX [Concomitant]
     Indication: PRODUCT USED FOR UNKNOWN INDICATION
     Dosage: 0.5 MG, TID
     Route: 048
     Dates: start: 20100520
  2. PREDNISONE [Suspect]
     Indication: HEART TRANSPLANT
     Dosage: 5 MG, BID
     Route: 048
  3. COLACE [Concomitant]
     Indication: PRODUCT USED FOR UNKNOWN INDICATION
     Dosage: 100 MG, BID
     Route: 048
  4. CELLCEPT [Suspect]
     Indication: HEART TRANSPLANT
     Dosage: 1500 MG, BID
     Route: 048
  5. OSCAL D [Concomitant]
     Dosage: 500/200 MG, BID
     Route: 048
  6. LIPITOR [Concomitant]
     Indication: PRODUCT USED FOR UNKNOWN INDICATION
     Dosage: 20 MG, UID/QD
     Route: 048
  7. PERCOCET [Concomitant]
     Indication: PRODUCT USED FOR UNKNOWN INDICATION
     Dosage: 5/325 MG, Q4-6 HOURS PRN
     Route: 048
  8. OSCAL D [Concomitant]
     Indication: PRODUCT USED FOR UNKNOWN INDICATION
     Dosage: 1500-600  MG, BID
     Route: 048
     Dates: start: 20100421
  9. MULTI-VITAMIN [Concomitant]
     Indication: PRODUCT USED FOR UNKNOWN INDICATION
     Dosage: 1 DF, UID/QD
     Route: 048
  10. PROGRAF [Suspect]
     Indication: HEART TRANSPLANT
     Dosage: 3 MG, BID
     Route: 065
     Dates: start: 20070710, end: 20100829
  11. VALTREX [Concomitant]
     Indication: PRODUCT USED FOR UNKNOWN INDICATION
     Dosage: 1 G, UID/QD
     Route: 048
     Dates: start: 20080506
  12. PLAQUENIL [Suspect]
     Indication: PRODUCT USED FOR UNKNOWN INDICATION
     Dosage: UNK
     Route: 065
  13. ATIVAN [Concomitant]
     Indication: PRODUCT USED FOR UNKNOWN INDICATION
     Dosage: 2 MG, QHS
     Route: 048

REACTIONS (13)
  - HAEMOPTYSIS [None]
  - LUNG NEOPLASM MALIGNANT [None]
  - RHEUMATOID ARTHRITIS [None]
  - HYPERTENSION [None]
  - DIARRHOEA [None]
  - HYPERKALAEMIA [None]
  - PNEUMONIA STAPHYLOCOCCAL [None]
  - DYSLIPIDAEMIA [None]
  - ANXIETY [None]
  - GENITAL HERPES [None]
  - DEATH [None]
  - HYPOVOLAEMIA [None]
  - CARDIOMYOPATHY [None]
